FAERS Safety Report 21558677 (Version 6)
Quarter: 2023Q2

REPORT INFORMATION
  Report Type: Spontaneous
  Country: CA (occurrence: CA)
  Receive Date: 20221107
  Receipt Date: 20230607
  Transmission Date: 20230721
  Serious: Yes (Other)
  Sender: FDA-Public Use
  Company Number: CA-CELLTRION INC.-2022CA017043

PATIENT

DRUGS (7)
  1. INFLECTRA [Suspect]
     Active Substance: INFLIXIMAB-DYYB
     Indication: Crohn^s disease
     Dosage: Q0,2,6 WEEKS, THEN EVERY 8 WEEKS
     Route: 042
     Dates: start: 20220916, end: 20230217
  2. INFLECTRA [Suspect]
     Active Substance: INFLIXIMAB-DYYB
     Dosage: Q0,2,6 WEEKS, THEN EVERY 8 WEEKS (LD#3)
     Route: 042
     Dates: start: 20221028
  3. INFLECTRA [Suspect]
     Active Substance: INFLIXIMAB-DYYB
     Dosage: Q0,2,6 WEEKS, THEN EVERY 8 WEEKS (LD#3)
     Route: 042
     Dates: start: 20221223
  4. INFLECTRA [Suspect]
     Active Substance: INFLIXIMAB-DYYB
     Dosage: Q0,2,6 WEEKS, THEN EVERY 8 WEEKS (LD#3)
     Route: 042
     Dates: start: 20230217
  5. INFLECTRA [Suspect]
     Active Substance: INFLIXIMAB-DYYB
     Dosage: EVERY 7 WEEKS
     Route: 042
     Dates: start: 20230405
  6. INFLECTRA [Suspect]
     Active Substance: INFLIXIMAB-DYYB
     Dosage: EVERY 7 WEEKS
     Route: 042
     Dates: start: 20230530, end: 20230530
  7. ENTOCORT [Concomitant]
     Active Substance: BUDESONIDE
     Dosage: UNK

REACTIONS (10)
  - Malaise [Unknown]
  - Dizziness [Unknown]
  - Flushing [Recovered/Resolved]
  - Headache [Recovering/Resolving]
  - Headache [Recovered/Resolved]
  - Pruritus [Recovered/Resolved]
  - Drug level below therapeutic [Unknown]
  - Off label use [Unknown]
  - Off label use [Unknown]
  - Intentional product use issue [Unknown]

NARRATIVE: CASE EVENT DATE: 20221028
